FAERS Safety Report 16074408 (Version 1)
Quarter: 2019Q1

REPORT INFORMATION
  Report Type: Report from Study
  Country: US (occurrence: US)
  Receive Date: 20190314
  Receipt Date: 20190314
  Transmission Date: 20190418
  Serious: Yes (Hospitalization, Other)
  Sender: FDA-Public Use
  Company Number: US-GILEAD-2019-0396294

PATIENT
  Age: 76 Year
  Sex: Female

DRUGS (1)
  1. RANOLAZINE. [Suspect]
     Active Substance: RANOLAZINE
     Indication: ANGINA PECTORIS
     Dosage: 1000 MG, BID
     Route: 048
     Dates: start: 2017

REACTIONS (4)
  - Viral infection [Unknown]
  - Fluid retention [Unknown]
  - Chronic obstructive pulmonary disease [Unknown]
  - Cardiac failure congestive [Unknown]

NARRATIVE: CASE EVENT DATE: 20190115
